FAERS Safety Report 5936526-9 (Version None)
Quarter: 2008Q4

REPORT INFORMATION
  Report Type: 
  Country: None (occurrence: None)
  Receive Date: 20081030
  Receipt Date: 20081029
  Transmission Date: 20090506
  Serious: Yes (Hospitalization)
  Sender: FDA-Public Use
  Company Number: US-ROXANE LABORATORIES, INC.-2008-RO-00177RO

PATIENT
  Age: 75 Year
  Sex: Male

DRUGS (3)
  1. AZATHIOPRINE [Suspect]
     Indication: MYASTHENIA GRAVIS
     Dosage: 50MG
     Dates: start: 20080328, end: 20080409
  2. BLOOD PRESSURE MEDICINE [Concomitant]
     Indication: BLOOD PRESSURE
  3. MESTINON [Concomitant]
     Indication: MYASTHENIA GRAVIS

REACTIONS (4)
  - ARTHRALGIA [None]
  - CHEST PAIN [None]
  - CONTUSION [None]
  - FEELING HOT [None]
